FAERS Safety Report 21566663 (Version 4)
Quarter: 2022Q4

REPORT INFORMATION
  Report Type: Spontaneous
  Country: CO (occurrence: CO)
  Receive Date: 20221108
  Receipt Date: 20221221
  Transmission Date: 20230113
  Serious: No
  Sender: FDA-Public Use
  Company Number: CO-PFIZER INC-PV202200089830

PATIENT
  Sex: Male

DRUGS (1)
  1. GENOTROPIN [Suspect]
     Active Substance: SOMATROPIN
     Dosage: 1.6 MG, UNK
     Route: 058
     Dates: start: 202208

REACTIONS (3)
  - Device occlusion [Unknown]
  - Wrong technique in device usage process [Unknown]
  - Expired device used [Unknown]

NARRATIVE: CASE EVENT DATE: 20220801
